FAERS Safety Report 5069663-4 (Version None)
Quarter: 2006Q3

REPORT INFORMATION
  Report Type: 
  Country: None (occurrence: None)
  Receive Date: 20060802
  Receipt Date: 20060802
  Transmission Date: 20061208
  Serious: Yes (Hospitalization)
  Sender: FDA-Public Use
  Company Number: None

PATIENT
  Age: 57 Year
  Sex: Female

DRUGS (1)
  1. FERRLICIT 62.5MG PER 5ML WATSON [Suspect]
     Indication: ANAEMIA
     Dosage: 125 MG ONCE DAILY IV DRIP
     Route: 041
     Dates: start: 20060511, end: 20060513

REACTIONS (5)
  - CELLULITIS [None]
  - DEEP VEIN THROMBOSIS [None]
  - INJECTION SITE ERYTHEMA [None]
  - INJECTION SITE PAIN [None]
  - THROMBOPHLEBITIS [None]
